FAERS Safety Report 15991814 (Version 1)
Quarter: 2019Q1

REPORT INFORMATION
  Report Type: Report from Study
  Country: DE (occurrence: DE)
  Receive Date: 20190221
  Receipt Date: 20190221
  Transmission Date: 20190418
  Serious: Yes (Hospitalization, Other)
  Sender: FDA-Public Use
  Company Number: DE-MYLANLABS-2019M1015298

PATIENT
  Age: 48 Year
  Sex: Male
  Weight: 83 kg

DRUGS (14)
  1. HUMIRA [Suspect]
     Active Substance: ADALIMUMAB
     Indication: ARTHRALGIA
     Dosage: 40 MILLIGRAM, QW
     Dates: start: 20140213, end: 2016
  2. NOVAMINSULFON [Concomitant]
     Active Substance: METAMIZOLE
     Indication: PRODUCT USED FOR UNKNOWN INDICATION
     Dosage: 500 MILLIGRAM, PRN
  3. XARELTO [Concomitant]
     Active Substance: RIVAROXABAN
     Indication: PRODUCT USED FOR UNKNOWN INDICATION
     Dosage: 20 MILLIGRAM, UNK
  4. SULFASALAZINE. [Concomitant]
     Active Substance: SULFASALAZINE
     Indication: PRODUCT USED FOR UNKNOWN INDICATION
  5. PANTOZOL [Concomitant]
     Active Substance: PANTOPRAZOLE SODIUM
     Indication: PRODUCT USED FOR UNKNOWN INDICATION
     Dosage: 40 MILLIGRAM, UNK
  6. TRAMAL [Concomitant]
     Active Substance: TRAMADOL
     Indication: PRODUCT USED FOR UNKNOWN INDICATION
     Dosage: 20 MILLIGRAM, PRN
  7. CITALOPRAM [Suspect]
     Active Substance: CITALOPRAM HYDROBROMIDE
     Indication: DEPRESSION
     Dosage: UNK
     Route: 048
     Dates: start: 201502
  8. HUMIRA [Suspect]
     Active Substance: ADALIMUMAB
     Indication: CROHN^S DISEASE
     Dosage: 40 MILLIGRAM, Q2W
     Route: 058
     Dates: start: 2016
  9. HUMIRA [Suspect]
     Active Substance: ADALIMUMAB
     Indication: PSORIASIS
     Dosage: 40 MILLIGRAM, QW
     Route: 058
     Dates: start: 20131012, end: 20180122
  10. PREDNISOLONE. [Concomitant]
     Active Substance: PREDNISOLONE
     Indication: ARTHRALGIA
     Dosage: CHANGING
     Route: 048
  11. FELODIPINE. [Concomitant]
     Active Substance: FELODIPINE
     Indication: PRODUCT USED FOR UNKNOWN INDICATION
     Dosage: UNK
  12. PALEXIA [Concomitant]
     Active Substance: TAPENTADOL HYDROCHLORIDE
     Indication: PRODUCT USED FOR UNKNOWN INDICATION
     Dosage: UNK
  13. HUMIRA [Suspect]
     Active Substance: ADALIMUMAB
     Indication: CROHN^S DISEASE
  14. SIMVASTATIN. [Concomitant]
     Active Substance: SIMVASTATIN
     Indication: PRODUCT USED FOR UNKNOWN INDICATION
     Dosage: 20 MILLIGRAM, UNK

REACTIONS (15)
  - Demyelinating polyneuropathy [Not Recovered/Not Resolved]
  - Erythema nodosum [Unknown]
  - Pain [Not Recovered/Not Resolved]
  - Raynaud^s phenomenon [Not Recovered/Not Resolved]
  - Fatigue [Not Recovered/Not Resolved]
  - Pallor [Unknown]
  - Pain in extremity [Not Recovered/Not Resolved]
  - Extremity necrosis [Not Recovered/Not Resolved]
  - Mitral valve incompetence [Unknown]
  - Skin discolouration [Not Recovered/Not Resolved]
  - Mobility decreased [Not Recovered/Not Resolved]
  - Peripheral artery occlusion [Not Recovered/Not Resolved]
  - Peripheral embolism [Not Recovered/Not Resolved]
  - Limb discomfort [Not Recovered/Not Resolved]
  - Gait disturbance [Not Recovered/Not Resolved]

NARRATIVE: CASE EVENT DATE: 2015
